FAERS Safety Report 8871699 (Version 1)
Quarter: 2012Q4

REPORT INFORMATION
  Report Type: 
  Country: BE (occurrence: BE)
  Receive Date: 20121029
  Receipt Date: 20121029
  Transmission Date: 20130627
  Serious: Yes (Hospitalization, Other)
  Sender: FDA-Public Use
  Company Number: PHHY2012BE094895

PATIENT
  Sex: Female

DRUGS (4)
  1. AFINITOR [Suspect]
     Dosage: 10 mg, UNK
     Dates: start: 20120330
  2. SIPRALEXA [Concomitant]
     Dosage: 10 mg, daily
     Route: 048
  3. CLEXANE [Concomitant]
     Route: 058
  4. DAFALGAN [Concomitant]
     Dosage: UNK

REACTIONS (8)
  - Malnutrition [Recovering/Resolving]
  - Pneumonia [Recovering/Resolving]
  - Pulmonary embolism [Recovering/Resolving]
  - Dehydration [Recovering/Resolving]
  - Mucosal inflammation [Recovering/Resolving]
  - Hypophagia [Recovering/Resolving]
  - Aphasia [Recovering/Resolving]
  - Aphthous stomatitis [Recovering/Resolving]
